FAERS Safety Report 17656108 (Version 3)
Quarter: 2020Q2

REPORT INFORMATION
  Report Type: Spontaneous
  Country: US (occurrence: US)
  Receive Date: 20200410
  Receipt Date: 20200514
  Transmission Date: 20200713
  Serious: No
  Sender: FDA-Public Use
  Company Number: US-KARYOPHARM-2020KPT000215

PATIENT

DRUGS (2)
  1. XPOVIO [Suspect]
     Active Substance: SELINEXOR
     Indication: PLASMA CELL MYELOMA
     Dosage: 60 MG, DAYS 1,8, AND 15
     Route: 048
     Dates: start: 20200221
  2. DEXAMETHASONE. [Concomitant]
     Active Substance: DEXAMETHASONE
     Indication: PRODUCT USED FOR UNKNOWN INDICATION

REACTIONS (12)
  - Constipation [Unknown]
  - Nausea [Unknown]
  - Thrombocytopenia [Not Recovered/Not Resolved]
  - Leukopenia [Unknown]
  - Anaemia [Not Recovered/Not Resolved]
  - Decreased appetite [Unknown]
  - Abdominal pain upper [Unknown]
  - Drug ineffective [Unknown]
  - Insomnia [Unknown]
  - Gait disturbance [Unknown]
  - Vomiting [Not Recovered/Not Resolved]
  - Weight decreased [Unknown]

NARRATIVE: CASE EVENT DATE: 2020
